FAERS Safety Report 5588566-X (Version None)
Quarter: 2008Q1

REPORT INFORMATION
  Report Type: 
  Country: None (occurrence: None)
  Receive Date: 20080111
  Receipt Date: 20070709
  Transmission Date: 20080703
  Serious: No
  Sender: FDA-Public Use
  Company Number: US-BRISTOL-MYERS SQUIBB COMPANY-13840947

PATIENT

DRUGS (2)
  1. TRAZODONE HCL [Suspect]
  2. BENZODIAZEPINES [Suspect]

REACTIONS (1)
  - DRUG SCREEN POSITIVE [None]
